FAERS Safety Report 5923315-4 (Version None)
Quarter: 2008Q4

REPORT INFORMATION
  Report Type: 
  Country: None (occurrence: None)
  Receive Date: 20081015
  Receipt Date: 20081001
  Transmission Date: 20090506
  Serious: Yes (Life-Threatening, Hospitalization)
  Sender: FDA-Public Use
  Company Number: 230567J07USA

PATIENT
  Age: 42 Year
  Sex: Male
  Weight: 84 kg

DRUGS (5)
  1. REBIF [Suspect]
     Indication: MULTIPLE SCLEROSIS
     Dosage: 44 MCG, 3 IN 1 WEEKS, SUBCUTANEOUS
     Route: 058
     Dates: start: 20060602
  2. PROVIGIL [Concomitant]
  3. ATIVAN [Concomitant]
  4. HYPERTENSION PILL (ANTIHYPERTENSIVES) [Concomitant]
  5. CLONAZEPAM [Concomitant]

REACTIONS (1)
  - PNEUMONIA [None]
